FAERS Safety Report 24017486 (Version 1)
Quarter: 2024Q2

REPORT INFORMATION
  Report Type: Spontaneous
  Country: US (occurrence: US)
  Receive Date: 20240627
  Receipt Date: 20240627
  Transmission Date: 20240715
  Serious: Yes (Other)
  Sender: FDA-Public Use
  Company Number: US-UCBSA-2024032351

PATIENT
  Sex: Female
  Weight: 77.8 kg

DRUGS (2)
  1. LEVETIRACETAM [Suspect]
     Active Substance: LEVETIRACETAM
     Indication: Product used for unknown indication
     Dosage: 1500 MILLIGRAM, 2X/DAY (BID)
  2. CENOBAMATE [Concomitant]
     Active Substance: CENOBAMATE
     Indication: Product used for unknown indication
     Dosage: 150 MILLIGRAM, ONCE DAILY (QD)

REACTIONS (7)
  - Focal dyscognitive seizures [Unknown]
  - Pruritus [Unknown]
  - Urticaria [Unknown]
  - Affective disorder [Unknown]
  - Crying [Unknown]
  - Depression [Unknown]
  - Fear [Unknown]
